FAERS Safety Report 20725414 (Version 1)
Quarter: 2022Q2

REPORT INFORMATION
  Report Type: Spontaneous
  Country: US (occurrence: US)
  Receive Date: 20220419
  Receipt Date: 20220419
  Transmission Date: 20220721
  Serious: Yes (Hospitalization, Other)
  Sender: FDA-Public Use
  Company Number: US-BRISTOL-MYERS SQUIBB COMPANY-2022-018626

PATIENT
  Sex: Male
  Weight: 122.9 kg

DRUGS (1)
  1. POMALYST [Suspect]
     Active Substance: POMALIDOMIDE
     Indication: Plasma cell myeloma
     Dosage: FREQUENCY: DAILY FOR 3 WEEKS ON, 1 WEEK OFF
     Route: 048
     Dates: start: 202112

REACTIONS (3)
  - Fall [Unknown]
  - Diarrhoea [Unknown]
  - Metabolic encephalopathy [Unknown]
